FAERS Safety Report 7042373-X (Version None)
Quarter: 2010Q4

REPORT INFORMATION
  Report Type: 
  Country: None (occurrence: None)
  Receive Date: 20101013
  Receipt Date: 20090904
  Transmission Date: 20110411
  Serious: No
  Sender: FDA-Public Use
  Company Number: US-ASTRAZENECA-2009SE11671

PATIENT
  Age: 74 Year
  Sex: Female
  Weight: 76.2 kg

DRUGS (1)
  1. SYMBICORT [Suspect]
     Dosage: 160/4.5 UG ONE PUFF TWICE A DAY
     Route: 055
     Dates: start: 20090903

REACTIONS (2)
  - FEELING JITTERY [None]
  - INSOMNIA [None]
